FAERS Safety Report 15208561 (Version 1)
Quarter: 2018Q3

REPORT INFORMATION
  Report Type: Report from Study
  Country: FR (occurrence: FR)
  Receive Date: 20180727
  Receipt Date: 20180727
  Transmission Date: 20181010
  Serious: Yes (Other)
  Sender: FDA-Public Use
  Company Number: FR-JNJFOC-20180729162

PATIENT
  Sex: Female

DRUGS (2)
  1. SIMPONI [Suspect]
     Active Substance: GOLIMUMAB
     Indication: PROCTITIS HAEMORRHAGIC
     Route: 058
     Dates: start: 201805
  2. SIMPONI [Suspect]
     Active Substance: GOLIMUMAB
     Indication: PROCTITIS HAEMORRHAGIC
     Route: 058

REACTIONS (4)
  - Iron deficiency [Unknown]
  - Haematochezia [Unknown]
  - Diarrhoea [Unknown]
  - Drug ineffective [Unknown]

NARRATIVE: CASE EVENT DATE: 2018
